FAERS Safety Report 14947781 (Version 2)
Quarter: 2018Q3

REPORT INFORMATION
  Report Type: Report from Study
  Country: FR (occurrence: FR)
  Receive Date: 20180529
  Receipt Date: 20180709
  Transmission Date: 20181010
  Serious: Yes (Hospitalization, Other)
  Sender: FDA-Public Use
  Company Number: FR-ASTELLAS-2018US023995

PATIENT
  Age: 78 Year
  Sex: Female

DRUGS (2)
  1. TACROLIMUS. [Suspect]
     Active Substance: TACROLIMUS
     Indication: RENAL TRANSPLANT
     Route: 048
     Dates: start: 20180425
  2. CERTICAN [Suspect]
     Active Substance: EVEROLIMUS
     Indication: RENAL TRANSPLANT
     Route: 048
     Dates: start: 20180426

REACTIONS (2)
  - Renal failure [Recovering/Resolving]
  - Acute pulmonary oedema [Recovered/Resolved with Sequelae]

NARRATIVE: CASE EVENT DATE: 20180425
